FAERS Safety Report 5467576-7 (Version None)
Quarter: 2007Q3

REPORT INFORMATION
  Report Type: 
  Country: None (occurrence: None)
  Receive Date: 20070925
  Receipt Date: 20070920
  Transmission Date: 20080115
  Serious: Yes (Other)
  Sender: FDA-Public Use
  Company Number: AU-ALLERGAN-0709975US

PATIENT
  Age: 69 Year
  Sex: Female

DRUGS (2)
  1. CYCLOSPORINE UNK [Suspect]
     Indication: UVEITIS
     Dosage: 250 MG, QD
  2. SIMVASTATIN [Interacting]
     Indication: HYPERCHOLESTEROLAEMIA
     Route: 048

REACTIONS (3)
  - DRUG INTERACTION [None]
  - RENAL FAILURE ACUTE [None]
  - RHABDOMYOLYSIS [None]
